FAERS Safety Report 9750170 (Version 2)
Quarter: 2014Q1

REPORT INFORMATION
  Report Type: Report from Study
  Country: AU (occurrence: AU)
  Receive Date: 20131212
  Receipt Date: 20140108
  Transmission Date: 20141002
  Serious: Yes (Other)
  Sender: FDA-Public Use
  Company Number: PHHY2013AU145537

PATIENT
  Age: 63 Year
  Sex: Female

DRUGS (9)
  1. ACLASTA [Suspect]
     Dosage: 5 MG, UNK
     Route: 042
     Dates: start: 20100216
  2. ACLASTA [Suspect]
     Dosage: 5 MG, UNK
     Route: 042
     Dates: start: 20110322
  3. ACLASTA [Suspect]
     Dosage: 5 MG, UNK
     Route: 042
     Dates: start: 20120424
  4. ACLASTA [Suspect]
     Dosage: 5 MG, UNK
     Route: 042
     Dates: start: 20131209
  5. ORAXIM [Concomitant]
     Dosage: 150 MG, UNK
     Route: 048
     Dates: start: 2003
  6. COVERSYL [Concomitant]
     Dosage: 10 MG, DAILY
     Route: 048
     Dates: start: 2009
  7. LOSARTAN [Concomitant]
     Indication: HYPERTENSION
     Dosage: 5 MG, UNK
     Route: 048
     Dates: start: 20111004
  8. KARVEA [Concomitant]
     Dosage: 300 MG, UNK
     Route: 048
     Dates: start: 20111206
  9. NATRILIX - SLOW RELEASE [Concomitant]
     Dosage: 1.5 MG, UNK
     Route: 048
     Dates: start: 2004

REACTIONS (1)
  - Breast cancer [Unknown]
